FAERS Safety Report 5593141-7 (Version None)
Quarter: 2008Q1

REPORT INFORMATION
  Report Type: 
  Country: None (occurrence: None)
  Receive Date: 20080114
  Receipt Date: 20080114
  Transmission Date: 20080703
  Serious: Yes (Other)
  Sender: FDA-Public Use
  Company Number: None

PATIENT
  Sex: Female
  Weight: 49.8957 kg

DRUGS (1)
  1. MOVE FREEADVANCED  TRIPLE STRENGTH   SCHIFF [Suspect]
     Indication: RHEUMATOID ARTHRITIS
     Dosage: 2 TABLETS  ONCE DAILY  PO
     Route: 048
     Dates: start: 20071115, end: 20071226

REACTIONS (7)
  - DIARRHOEA [None]
  - DRUG HYPERSENSITIVITY [None]
  - MALAISE [None]
  - NAUSEA [None]
  - PYREXIA [None]
  - THERAPEUTIC PRODUCT CONTAMINATION [None]
  - WEIGHT DECREASED [None]
